FAERS Safety Report 17444197 (Version 1)
Quarter: 2020Q1

REPORT INFORMATION
  Report Type: Spontaneous
  Country: US (occurrence: US)
  Receive Date: 20200207
  Receipt Date: 20200207
  Transmission Date: 20200409
  Serious: Yes (Hospitalization)
  Sender: FDA-Public Use
  Company Number: None

PATIENT
  Age: 3 Month
  Sex: Female

DRUGS (1)
  1. ZARBEE^S NATURALS BABY COUGH SYRUP [Suspect]
     Active Substance: HERBALS
     Indication: COUGH
     Dosage: ?          QUANTITY:3 MILLIMETERS;?
     Route: 048
     Dates: start: 20191124, end: 20191212

REACTIONS (3)
  - Hypersomnia [None]
  - Product tampering [None]
  - Drug screen positive [None]

NARRATIVE: CASE EVENT DATE: 20191124
